FAERS Safety Report 10637602 (Version 2)
Quarter: 2014Q4

REPORT INFORMATION
  Report Type: Spontaneous
  Country: GB (occurrence: GB)
  Receive Date: 20141208
  Receipt Date: 20141208
  Transmission Date: 20150529
  Serious: Yes (Life-Threatening, Hospitalization, Other)
  Sender: FDA-Public Use
  Company Number: GB-TEVA-385884ISR

PATIENT
  Age: 74 Year
  Sex: Female

DRUGS (14)
  1. ADCAL-D3 [Concomitant]
     Active Substance: CALCIUM CARBONATE\CHOLECALCIFEROL
  2. METRONIDAZOLE. [Concomitant]
     Active Substance: METRONIDAZOLE
  3. FUROSEMIDE. [Concomitant]
     Active Substance: FUROSEMIDE
  4. CIPROFLOXACIN. [Suspect]
     Active Substance: CIPROFLOXACIN
     Indication: PERITONITIS BACTERIAL
     Route: 048
     Dates: start: 20110215, end: 20110403
  5. VITAMIN K [Concomitant]
     Active Substance: PHYTONADIONE
  6. BENZYDAMINE [Concomitant]
     Active Substance: BENZYDAMINE
  7. FOLIC ACID. [Concomitant]
     Active Substance: FOLIC ACID
  8. PANCREATIN [Concomitant]
     Active Substance: PANCRELIPASE
  9. SPIRONOLACTONE. [Concomitant]
     Active Substance: SPIRONOLACTONE
  10. TAZOCIN [Suspect]
     Active Substance: PIPERACILLIN SODIUM\TAZOBACTAM SODIUM
     Indication: PNEUMONIA
     Dosage: 4.5G TDS
     Route: 042
     Dates: start: 20110211, end: 20110215
  11. OMEPRAZOLE. [Suspect]
     Active Substance: OMEPRAZOLE
  12. LACTULOSE. [Concomitant]
     Active Substance: LACTULOSE
  13. MULTIVITAMIN [Concomitant]
     Active Substance: VITAMINS
  14. VANCOMYCIN [Concomitant]
     Active Substance: VANCOMYCIN

REACTIONS (3)
  - Intestinal dilatation [Unknown]
  - Frequent bowel movements [Recovered/Resolved]
  - Clostridium difficile colitis [Recovered/Resolved]

NARRATIVE: CASE EVENT DATE: 20110312
